FAERS Safety Report 20532539 (Version 1)
Quarter: 2022Q1

REPORT INFORMATION
  Report Type: Spontaneous
  Country: US (occurrence: None)
  Receive Date: 20220228
  Receipt Date: 20220228
  Transmission Date: 20220424
  Serious: Yes (Hospitalization)
  Sender: FDA-Public Use
  Company Number: None

PATIENT
  Age: 74 Year
  Sex: Female
  Weight: 71.9 kg

DRUGS (3)
  1. CYCLOPHOSPHAMIDE [Suspect]
     Active Substance: CYCLOPHOSPHAMIDE
     Indication: Breast cancer female
     Dosage: FREQUENCY : DAILY;?
     Route: 048
     Dates: start: 20180407, end: 20220204
  2. RETACRIT [Suspect]
     Active Substance: EPOETIN ALFA-EPBX
  3. AUGMENTIN [Concomitant]
     Active Substance: AMOXICILLIN\CLAVULANATE POTASSIUM

REACTIONS (5)
  - Urinary tract infection [None]
  - Therapy interrupted [None]
  - Cerebrovascular accident [None]
  - Cerebral thrombosis [None]
  - Pruritus [None]

NARRATIVE: CASE EVENT DATE: 20220227
